FAERS Safety Report 19509654 (Version 1)
Quarter: 2021Q3

REPORT INFORMATION
  Report Type: Spontaneous
  Country: GB (occurrence: GB)
  Receive Date: 20210709
  Receipt Date: 20210709
  Transmission Date: 20211014
  Serious: Yes (Other)
  Sender: FDA-Public Use
  Company Number: GB-AUROBINDO-AUR-APL-2021-028844

PATIENT
  Age: 61 Year
  Sex: Female
  Weight: 70 kg

DRUGS (2)
  1. ACICLOVIR [Suspect]
     Active Substance: ACYCLOVIR
     Indication: PRODUCT USED FOR UNKNOWN INDICATION
     Dosage: UNK
     Route: 065
  2. ASTRAZENECA COVID?19 VACCINE [Suspect]
     Active Substance: AZD-1222
     Indication: PRODUCT USED FOR UNKNOWN INDICATION
     Dosage: UNK (DOSE 1)
     Route: 065
     Dates: start: 20210319

REACTIONS (6)
  - Pain in extremity [Recovering/Resolving]
  - Rash [Recovering/Resolving]
  - Pruritus [Recovering/Resolving]
  - Herpes zoster [Recovered/Resolved with Sequelae]
  - Dry mouth [Recovering/Resolving]
  - Neuralgia [Recovering/Resolving]

NARRATIVE: CASE EVENT DATE: 20210430
